FAERS Safety Report 9649717 (Version 1)
Quarter: 2013Q4

REPORT INFORMATION
  Report Type: Spontaneous
  Country: FI (occurrence: FI)
  Receive Date: 20131028
  Receipt Date: 20131028
  Transmission Date: 20140711
  Serious: Yes (Death, Life-Threatening, Hospitalization, Disabling, Congenital Anomaly, Other)
  Sender: FDA-Public Use
  Company Number: FI-B.I. PHARMACEUTICALS,INC./RIDGEFIELD-2013-BI-34314SF

PATIENT
  Age: 85 Year
  Sex: Female

DRUGS (24)
  1. PRADAXA [Suspect]
     Dosage: 220 MG
     Dates: start: 20130704, end: 20130930
  2. SOMAC [Suspect]
     Dosage: 20 MG
     Dates: start: 20130506, end: 20130930
  3. LITALGIN [Suspect]
     Dosage: NO. OF APPLICATION: 1-2
     Dates: start: 20110816, end: 20130930
  4. PSYLLIUM HUSK [Suspect]
     Dates: start: 20110905, end: 20130930
  5. DIFORMIN RETARD [Suspect]
     Dosage: 1000 MG
     Dates: start: 20130528, end: 20130930
  6. FURESIS [Suspect]
     Dosage: 80 MG
     Dates: start: 20070724, end: 20130930
  7. ENALAPRIL-RATIOPHARM [Suspect]
     Dosage: 10 MG
     Dates: start: 20110803, end: 20130930
  8. PRAVASTATIN RATIOPHARM [Suspect]
     Dosage: 40 MG
     Route: 048
     Dates: start: 20110728, end: 20130930
  9. APURIN SANDOZ [Suspect]
     Dosage: 100 MG
     Dates: start: 20111102, end: 20130930
  10. NORSPAN [Suspect]
     Dosage: 1.4286 MCG
     Dates: start: 20130604, end: 20130930
  11. ZOPINOX [Suspect]
     Dosage: 7.5 MG
     Dates: start: 20130110, end: 20130930
  12. NASOFAN [Suspect]
     Dosage: 100 MCG
     Dates: start: 20101015, end: 20130930
  13. IPRAMOL [Suspect]
     Dosage: DOSE: 0.5/2.5 MG/DOS
     Dates: start: 20130910, end: 20130930
  14. FLIXOTIDE EVOHALER [Suspect]
     Dosage: NO. OF APPLICATION: 1-2 PUFFS
     Dates: start: 20070309, end: 20130930
  15. OFTAGEL [Suspect]
     Dosage: DOSE STRENGTH: 2.5 MG/G, 1-4
     Dates: start: 20130219, end: 20130930
  16. TREXAN [Suspect]
     Dosage: 1.4286 MG
     Dates: start: 20130110, end: 201305
  17. BRICANYL TURBUHALER [Suspect]
     Dates: start: 20070814, end: 20130910
  18. CALCICHEW D3 FORTE [Concomitant]
     Dosage: 500 MG/10 MICROG
     Dates: start: 20120821
  19. KALEORID [Concomitant]
     Dosage: 2 G
     Dates: start: 20130506
  20. MYCOSTATIN [Concomitant]
     Dosage: 25000 U
     Dates: start: 20130911
  21. ISANGINA [Concomitant]
     Dosage: 25 MG
     Dates: start: 20070403
  22. ORLOC [Concomitant]
     Dosage: 10 MG
     Dates: start: 20130528
  23. PREDNISOLON [Concomitant]
     Dosage: 5 MG
     Dates: start: 20130506
  24. PARATABS [Concomitant]
     Dosage: 1500 MG
     Dates: start: 20070814

REACTIONS (10)
  - General physical health deterioration [Fatal]
  - Neutropenic infection [Fatal]
  - White blood cell count decreased [Fatal]
  - Haemoglobin abnormal [Fatal]
  - Platelet count abnormal [Fatal]
  - Tongue haemorrhage [Fatal]
  - Haematoma [Fatal]
  - Fatigue [Fatal]
  - Oral pain [Fatal]
  - Bone marrow failure [Fatal]
